FAERS Safety Report 20188974 (Version 1)
Quarter: 2021Q4

REPORT INFORMATION
  Report Type: Spontaneous
  Country: JP (occurrence: JP)
  Receive Date: 20211215
  Receipt Date: 20211215
  Transmission Date: 20220304
  Serious: Yes (Hospitalization, Other)
  Sender: FDA-Public Use
  Company Number: JP-Eisai-202109476_LEN_P_1

PATIENT

DRUGS (1)
  1. LENVIMA [Suspect]
     Active Substance: LENVATINIB
     Indication: Anaplastic thyroid cancer
     Dosage: DOSE AND FREQUENCY UNKNOWN
     Route: 048
     Dates: end: 2021

REACTIONS (4)
  - Type 1 diabetes mellitus [Unknown]
  - Hyperglycaemia [Recovering/Resolving]
  - Loss of consciousness [Unknown]
  - Impaired insulin secretion [Unknown]

NARRATIVE: CASE EVENT DATE: 20211101
